APPROVED DRUG PRODUCT: DILTIAZEM HYDROCHLORIDE
Active Ingredient: DILTIAZEM HYDROCHLORIDE
Strength: 100MG/VIAL
Dosage Form/Route: INJECTABLE;INJECTION
Application: A075853 | Product #001
Applicant: HOSPIRA INC
Approved: Dec 17, 2002 | RLD: No | RS: Yes | Type: RX